FAERS Safety Report 6881197-0 (Version None)
Quarter: 2010Q3

REPORT INFORMATION
  Report Type: 
  Country: None (occurrence: None)
  Receive Date: 20100727
  Receipt Date: 20100719
  Transmission Date: 20110219
  Serious: No
  Sender: FDA-Public Use
  Company Number: US-BIOGENIDEC-2010BI024664

PATIENT
  Sex: Female

DRUGS (1)
  1. TYSABRI [Suspect]
     Indication: MULTIPLE SCLEROSIS
     Route: 042
     Dates: start: 20080523

REACTIONS (5)
  - HERPES ZOSTER [None]
  - HYPOAESTHESIA [None]
  - NASOPHARYNGITIS [None]
  - PILOERECTION [None]
  - RASH PAPULAR [None]
